FAERS Safety Report 5571743-1 (Version None)
Quarter: 2007Q4

REPORT INFORMATION
  Report Type: 
  Country: None (occurrence: None)
  Receive Date: 20071221
  Receipt Date: 20071217
  Transmission Date: 20080405
  Serious: Yes (Other)
  Sender: FDA-Public Use
  Company Number: A0700349A

PATIENT
  Age: 41 Year
  Sex: Female

DRUGS (3)
  1. SUMATRIPTAN SUCCINATE [Suspect]
     Indication: MIGRAINE
     Dosage: 100MG PER DAY
     Route: 048
     Dates: start: 20070620, end: 20070620
  2. METOPROLOL [Concomitant]
  3. PREDNISONE [Concomitant]

REACTIONS (2)
  - DELIVERY [None]
  - GESTATIONAL DIABETES [None]
